FAERS Safety Report 23230955 (Version 1)
Quarter: 2023Q4

REPORT INFORMATION
  Report Type: Spontaneous
  Country: US (occurrence: None)
  Receive Date: 20231122
  Receipt Date: 20231122
  Transmission Date: 20240109
  Serious: Yes (Death)
  Sender: FDA-Public Use
  Company Number: None

PATIENT
  Age: 68 Year
  Sex: Male

DRUGS (1)
  1. CABENUVA [Suspect]
     Active Substance: CABOTEGRAVIR\RILPIVIRINE
     Dosage: OTHER QUANTITY : 600/900MG;?OTHER FREQUENCY : Q 2C MONTHS;?
     Route: 030
     Dates: start: 20220615

REACTIONS (1)
  - Death [None]

NARRATIVE: CASE EVENT DATE: 20231010
